FAERS Safety Report 6408936-7 (Version None)
Quarter: 2009Q4

REPORT INFORMATION
  Report Type: 
  Country: None (occurrence: None)
  Receive Date: 20091021
  Receipt Date: 20091016
  Transmission Date: 20100525
  Serious: Yes (Hospitalization)
  Sender: FDA-Public Use
  Company Number: IE-BRISTOL-MYERS SQUIBB COMPANY-14821391

PATIENT
  Age: 84 Year
  Sex: Female

DRUGS (3)
  1. ABILIFY [Suspect]
     Dosage: DOSE INCREASED FROM 45MG TO 60MG
  2. RISPERIDONE [Concomitant]
  3. METOPROLOL TARTRATE [Concomitant]
     Indication: MYOCARDIAL ISCHAEMIA

REACTIONS (1)
  - HALLUCINATION [None]
